FAERS Safety Report 7478567-9 (Version None)
Quarter: 2011Q2

REPORT INFORMATION
  Report Type: 
  Country: None (occurrence: None)
  Receive Date: 20110504
  Receipt Date: 20110421
  Transmission Date: 20111010
  Serious: Yes (Hospitalization, Other)
  Sender: FDA-Public Use
  Company Number: 2010SP014790

PATIENT
  Age: 28 Year
  Sex: Female
  Weight: 63.5036 kg

DRUGS (3)
  1. KLONOPIN [Concomitant]
  2. COMPAZINE [Suspect]
     Indication: PRODUCT USED FOR UNKNOWN INDICATION
     Dates: end: 20080311
  3. NUVARING [Suspect]
     Indication: CONTRACEPTION
     Dates: start: 20040301, end: 20080101

REACTIONS (8)
  - THROMBOPHLEBITIS SUPERFICIAL [None]
  - ANEURYSM [None]
  - BLOOD PRESSURE INCREASED [None]
  - EXTRAPYRAMIDAL DISORDER [None]
  - VAGINAL HAEMORRHAGE [None]
  - HAEMORRHAGE [None]
  - DEEP VEIN THROMBOSIS [None]
  - HEART RATE INCREASED [None]
